FAERS Safety Report 9348905 (Version 1)
Quarter: 2013Q2

REPORT INFORMATION
  Report Type: Report from Study
  Country: GB (occurrence: GB)
  Receive Date: 20130614
  Receipt Date: 20130614
  Transmission Date: 20140414
  Serious: Yes (Other)
  Sender: FDA-Public Use
  Company Number: GB-COVIDIEN/TYCO HEALTHCARE/MALLINCKRODT-T201303143

PATIENT
  Sex: Female

DRUGS (1)
  1. SODIUM IODIDE (I 131) SOLUTION [Suspect]
     Indication: RADIOACTIVE IODINE THERAPY
     Dosage: UNK
     Route: 065

REACTIONS (1)
  - Hypothyroidism [Unknown]
